FAERS Safety Report 16847295 (Version 1)
Quarter: 2019Q3

REPORT INFORMATION
  Report Type: Report from Study
  Country: US (occurrence: US)
  Receive Date: 20190924
  Receipt Date: 20190924
  Transmission Date: 20191005
  Serious: Yes (Hospitalization)
  Sender: FDA-Public Use
  Company Number: US-ACTELION-A-NJ2019-195855

PATIENT
  Age: 60 Year
  Sex: Female

DRUGS (10)
  1. TRIAM TIAZIDA R [Concomitant]
  2. VITAMIN D [Concomitant]
     Active Substance: VITAMIN D NOS
  3. ESOMEPRAZOLE. [Concomitant]
     Active Substance: ESOMEPRAZOLE MAGNESIUM
  4. POTASSIUM [Concomitant]
     Active Substance: POTASSIUM
  5. LEVOTHYROXINE. [Concomitant]
     Active Substance: LEVOTHYROXINE
  6. PREGABALIN. [Concomitant]
     Active Substance: PREGABALIN
  7. OPSUMIT [Suspect]
     Active Substance: MACITENTAN
     Indication: PULMONARY ARTERIAL HYPERTENSION
     Dosage: 10 MG, QD
     Route: 048
     Dates: start: 20190818
  8. BUPROPION. [Concomitant]
     Active Substance: BUPROPION
  9. DULOXETINE. [Concomitant]
     Active Substance: DULOXETINE
  10. LYRICA [Concomitant]
     Active Substance: PREGABALIN

REACTIONS (2)
  - Product dose omission [Not Recovered/Not Resolved]
  - Myocardial infarction [Not Recovered/Not Resolved]

NARRATIVE: CASE EVENT DATE: 20190909
